FAERS Safety Report 20745852 (Version 1)
Quarter: 2022Q2

REPORT INFORMATION
  Report Type: Spontaneous
  Country: US (occurrence: None)
  Receive Date: 20220423
  Receipt Date: 20220423
  Transmission Date: 20220720
  Serious: Yes (unspecified)
  Sender: FDA-Public Use
  Company Number: None

PATIENT
  Age: 57 Year
  Sex: Female
  Weight: 58.5 kg

DRUGS (4)
  1. HUMIRA [Suspect]
     Active Substance: ADALIMUMAB
     Indication: Rheumatoid arthritis
  2. PREDNISONE [Concomitant]
     Active Substance: PREDNISONE
  3. VITAMIN D NOS [Concomitant]
     Active Substance: VITAMIN D NOS
  4. PEPCID [Concomitant]
     Active Substance: FAMOTIDINE

REACTIONS (4)
  - Gingival erythema [None]
  - Rash macular [None]
  - Scab [None]
  - Scar [None]

NARRATIVE: CASE EVENT DATE: 20220121
